FAERS Safety Report 18755915 (Version 1)
Quarter: 2021Q1

REPORT INFORMATION
  Report Type: Spontaneous
  Country: ES (occurrence: ES)
  Receive Date: 20210119
  Receipt Date: 20210119
  Transmission Date: 20210419
  Serious: Yes (Other)
  Sender: FDA-Public Use
  Company Number: NVSC2021ES009712

PATIENT
  Age: 59 Year
  Sex: Male

DRUGS (8)
  1. ACICLOVIR STADA [Concomitant]
     Indication: CHRONIC MYELOID LEUKAEMIA
     Dosage: 400 MG, Q12H
     Route: 048
     Dates: start: 20200923
  2. BENADON [Concomitant]
     Active Substance: PYRIDOXINE HYDROCHLORIDE
     Indication: CELLULITIS
     Dosage: 300 MG, Q24H
     Route: 048
     Dates: start: 20201215
  3. LEVOFLOXACINO STADA [Concomitant]
     Indication: CHRONIC MYELOID LEUKAEMIA
     Dosage: 500 MG, Q24H
     Route: 048
     Dates: start: 20201021
  4. DOLOCATIL [Concomitant]
     Active Substance: ACETAMINOPHEN
     Indication: BRONCHITIS
     Dosage: 1 G, Q8H
     Route: 048
     Dates: start: 20130211
  5. EXJADE [Suspect]
     Active Substance: DEFERASIROX
     Indication: ACUTE LEUKAEMIA
     Dosage: 720 MG, Q24H
     Route: 048
     Dates: start: 20201215
  6. AMCHAFIBRIN [Concomitant]
     Active Substance: TRANEXAMIC ACID
     Indication: ACUTE LEUKAEMIA
     Dosage: 100 MG, Q8H
     Route: 048
     Dates: start: 20201130
  7. LINEZOLID NORMON [Concomitant]
     Indication: CELLULITIS
     Route: 065
  8. OMEPRAZOL [Concomitant]
     Active Substance: OMEPRAZOLE
     Indication: CHRONIC MYELOID LEUKAEMIA
     Dosage: 20 MG, Q24H
     Route: 048

REACTIONS (1)
  - Haematoma [Recovering/Resolving]

NARRATIVE: CASE EVENT DATE: 20201221
